FAERS Safety Report 13841223 (Version 1)
Quarter: 2017Q3

REPORT INFORMATION
  Report Type: Spontaneous
  Country: CN (occurrence: CN)
  Receive Date: 20170807
  Receipt Date: 20170807
  Transmission Date: 20171127
  Serious: Yes (Death, Life-Threatening)
  Sender: FDA-Public Use
  Company Number: CN-BAYER-2017-144894

PATIENT
  Age: 54 Year
  Sex: Male
  Weight: 75 kg

DRUGS (11)
  1. LEVOFLOXACIN. [Concomitant]
     Active Substance: LEVOFLOXACIN
     Dosage: 100 ML, UNK
     Route: 042
  2. PARACETAMOL [Suspect]
     Active Substance: ACETAMINOPHEN
     Dosage: 0.5 G, BID
     Route: 045
     Dates: start: 20170513, end: 20170516
  3. CEFOPERAZONE SODIUM/SULBACTAM SODIUM [Suspect]
     Active Substance: CEFOPERAZONE SODIUM\SULBACTAM SODIUM
     Indication: PNEUMONIA
     Dosage: 2 G, BID
     Route: 041
     Dates: start: 20170514, end: 20170517
  4. ATORVASTATIN [Suspect]
     Active Substance: ATORVASTATIN
     Dosage: 200 MG, QD(ONCE EVERY NIGHT )
     Route: 048
     Dates: start: 20170512, end: 20170515
  5. BAYASPIRIN 100 MG [Suspect]
     Active Substance: ASPIRIN
     Indication: PLATELET AGGREGATION ABNORMAL
     Dosage: 0.1 G, QD
     Route: 048
     Dates: start: 20170515, end: 20170519
  6. SODIUM CHLORIDE INJECTION [Concomitant]
     Active Substance: SODIUM CHLORIDE
     Indication: INFLAMMATION
     Dosage: 100 ML, BID
     Route: 041
     Dates: start: 201705
  7. CETIRIZINE HYDROCHLORIDE. [Concomitant]
     Active Substance: CETIRIZINE HYDROCHLORIDE
     Indication: ANTIALLERGIC THERAPY
     Dosage: 10 MG, QD
     Route: 048
     Dates: start: 201705
  8. TEGRETOL [Concomitant]
     Active Substance: CARBAMAZEPINE
     Indication: EPILEPSY
     Dosage: 100 MG, TID
     Route: 048
     Dates: start: 20170510, end: 20170512
  9. CHLORPHENAMINE MALEATE [Concomitant]
     Active Substance: CHLORPHENIRAMINE MALEATE
     Dosage: 4 MG, UNK
  10. ACETAMINOPHEN. [Concomitant]
     Active Substance: ACETAMINOPHEN
     Dosage: 0.5 G, UNK
     Route: 045
  11. CEFOPERAZONE SODIUM/SULBACTAM SODIUM [Concomitant]
     Active Substance: CEFOPERAZONE SODIUM\SULBACTAM SODIUM
     Dosage: UNK

REACTIONS (3)
  - Upper gastrointestinal haemorrhage [Fatal]
  - Rash [Fatal]
  - Hepatic function abnormal [Fatal]

NARRATIVE: CASE EVENT DATE: 20170603
